FAERS Safety Report 6486582-7 (Version None)
Quarter: 2009Q4

REPORT INFORMATION
  Report Type: 
  Country: None (occurrence: None)
  Receive Date: 20091210
  Receipt Date: 20091208
  Transmission Date: 20100525
  Serious: Yes (Life-Threatening, Hospitalization)
  Sender: FDA-Public Use
  Company Number: PHEH2009US11441

PATIENT
  Sex: Male

DRUGS (1)
  1. EXJADE [Suspect]
     Dosage: 2125 UNK, DAILY
     Route: 048
     Dates: start: 20071023, end: 20090828

REACTIONS (2)
  - APPARENT DEATH [None]
  - PNEUMONIA [None]
